FAERS Safety Report 7145088-2 (Version None)
Quarter: 2010Q4

REPORT INFORMATION
  Report Type: 
  Country: None (occurrence: None)
  Receive Date: 20101208
  Receipt Date: 20101202
  Transmission Date: 20110411
  Serious: Yes (Hospitalization)
  Sender: FDA-Public Use
  Company Number: PHHY2010TW82653

PATIENT
  Sex: Male
  Weight: 46 kg

DRUGS (2)
  1. EXJADE [Suspect]
     Indication: APLASTIC ANAEMIA
     Dosage: 750 MG/DAY
     Route: 048
     Dates: start: 20100723
  2. EXJADE [Suspect]
     Dosage: 750 MG/DAY
     Route: 048
     Dates: start: 20101004

REACTIONS (4)
  - CHEST PAIN [None]
  - CHILLS [None]
  - PNEUMONIA [None]
  - PYREXIA [None]
